FAERS Safety Report 18595051 (Version 1)
Quarter: 2020Q4

REPORT INFORMATION
  Report Type: Spontaneous
  Country: US (occurrence: US)
  Receive Date: 20201209
  Receipt Date: 20201209
  Transmission Date: 20210114
  Serious: No
  Sender: FDA-Public Use
  Company Number: US-SA-2020SA348803

PATIENT

DRUGS (2)
  1. NA [Concomitant]
     Active Substance: SODIUM
     Dosage: UNK
  2. ALLEGRA ALLERGY [Suspect]
     Active Substance: FEXOFENADINE HYDROCHLORIDE
     Indication: NASAL CONGESTION
     Dosage: 180 MG, QD
     Dates: start: 20201129

REACTIONS (1)
  - Drug ineffective [Unknown]
